FAERS Safety Report 18737100 (Version 1)
Quarter: 2021Q1

REPORT INFORMATION
  Report Type: Spontaneous
  Country: US (occurrence: US)
  Receive Date: 20210113
  Receipt Date: 20210113
  Transmission Date: 20210419
  Serious: Yes (Hospitalization, Disabling)
  Sender: FDA-Public Use
  Company Number: US-TEVA-2021-US-1866830

PATIENT
  Sex: Male

DRUGS (5)
  1. DURAGESIC [Suspect]
     Active Substance: FENTANYL
     Route: 064
  2. CODEINE PHOSPHATE [Suspect]
     Active Substance: CODEINE PHOSPHATE
     Route: 064
  3. TRAMADOL. [Suspect]
     Active Substance: TRAMADOL
     Route: 064
  4. ACETAMINOPHEN. [Suspect]
     Active Substance: ACETAMINOPHEN
     Route: 064
  5. DILAUDID [Suspect]
     Active Substance: HYDROMORPHONE HYDROCHLORIDE
     Route: 064

REACTIONS (10)
  - Drug withdrawal syndrome [Unknown]
  - Drug dependence [Unknown]
  - Drug withdrawal syndrome neonatal [Unknown]
  - Crying [Unknown]
  - Pain [Unknown]
  - Poor feeding infant [Unknown]
  - Physical disability [Not Recovered/Not Resolved]
  - Tremor [Unknown]
  - Mental disability [Not Recovered/Not Resolved]
  - Foetal exposure during pregnancy [Unknown]
